FAERS Safety Report 21580169 (Version 1)
Quarter: 2022Q4

REPORT INFORMATION
  Report Type: Report from Study
  Country: US (occurrence: US)
  Receive Date: 20221110
  Receipt Date: 20221110
  Transmission Date: 20230113
  Serious: No
  Sender: FDA-Public Use
  Company Number: US-ABBVIE-4138767

PATIENT
  Sex: Female

DRUGS (2)
  1. HUMIRA [Suspect]
     Active Substance: ADALIMUMAB
     Indication: Rheumatoid arthritis
     Dosage: CITRATE FREE, STRENGTH: 40 MILLIGRAM.
     Route: 058
  2. COVID-19 vaccine [Concomitant]
     Indication: COVID-19 immunisation
     Dosage: FREQUENCY: ONE IN ONCE.
     Route: 030

REACTIONS (3)
  - Inflammation [Not Recovered/Not Resolved]
  - Pain in extremity [Unknown]
  - Neck pain [Unknown]
